FAERS Safety Report 13231007 (Version 1)
Quarter: 2017Q1

REPORT INFORMATION
  Report Type: Spontaneous
  Country: None (occurrence: US)
  Receive Date: 20170214
  Receipt Date: 20170214
  Transmission Date: 20170428
  Serious: Yes (Hospitalization)
  Sender: FDA-Public Use
  Company Number: US-XTTRIUM LABORATORIES, INC-1063071

PATIENT
  Age: 50 Year
  Sex: Female
  Weight: 48.64 kg

DRUGS (1)
  1. SCRUB CARE EXIDINE -4 CHG [Suspect]
     Active Substance: CHLORHEXIDINE GLUCONATE
     Indication: SEPSIS
     Route: 061
     Dates: start: 20161014, end: 20161112

REACTIONS (2)
  - Sepsis [Recovering/Resolving]
  - Dermatitis contact [Recovering/Resolving]

NARRATIVE: CASE EVENT DATE: 20161014
